FAERS Safety Report 7464481-1 (Version None)
Quarter: 2011Q2

REPORT INFORMATION
  Report Type: 
  Country: None (occurrence: None)
  Receive Date: 20110509
  Receipt Date: 20110425
  Transmission Date: 20111010
  Serious: Yes (Hospitalization, Other)
  Sender: FDA-Public Use
  Company Number: US-JNJFOC-20110411716

PATIENT
  Sex: Female
  Weight: 43.55 kg

DRUGS (7)
  1. DURAGESIC-50 [Suspect]
     Route: 062
  2. FENTANYL CITRATE [Suspect]
     Route: 062
  3. DURAGESIC-50 [Suspect]
     Indication: PAIN
     Route: 062
  4. DURAGESIC-50 [Suspect]
     Route: 062
  5. FENTANYL CITRATE [Suspect]
     Indication: PAIN
     Route: 062
  6. DURAGESIC-50 [Suspect]
     Route: 062
  7. DURAGESIC-50 [Suspect]
     Route: 062

REACTIONS (14)
  - SINUS DISORDER [None]
  - BONE LOSS [None]
  - SPONDYLITIS [None]
  - WRONG TECHNIQUE IN DRUG USAGE PROCESS [None]
  - JOINT DISLOCATION [None]
  - DRUG ADMINISTERED AT INAPPROPRIATE SITE [None]
  - ASTHMA [None]
  - URTICARIA [None]
  - BODY HEIGHT DECREASED [None]
  - BREAKTHROUGH PAIN [None]
  - GAIT DISTURBANCE [None]
  - PRODUCT ADHESION ISSUE [None]
  - PAIN [None]
  - NAUSEA [None]
